FAERS Safety Report 11685523 (Version 1)
Quarter: 2015Q4

REPORT INFORMATION
  Report Type: Spontaneous
  Country: US (occurrence: None)
  Receive Date: 20151029
  Receipt Date: 20151029
  Transmission Date: 20160304
  Serious: No
  Sender: FDA-Public Use
  Company Number: None

PATIENT
  Age: 85 Year
  Sex: Female
  Weight: 58.97 kg

DRUGS (9)
  1. PRILOSEC [Concomitant]
     Active Substance: OMEPRAZOLE MAGNESIUM
  2. COLACE [Concomitant]
     Active Substance: DOCUSATE SODIUM
  3. NAVANE [Concomitant]
     Active Substance: THIOTHIXENE
  4. BABY ASA [Concomitant]
     Active Substance: ASPIRIN
  5. GLIPIZIDE. [Concomitant]
     Active Substance: GLIPIZIDE
  6. SYNTHROID [Concomitant]
     Active Substance: LEVOTHYROXINE SODIUM
  7. AMLODIPINE 10 MG INVAGEN/HAUPPAGE, NY [Suspect]
     Active Substance: AMLODIPINE BESYLATE
     Indication: HYPERTENSION
     Dosage: 1 PILL ONCE DAILY
     Route: 048
     Dates: start: 20151014, end: 20151028
  8. LISINOPRIL AND HYDROCHLOROTHIAZIDE [Concomitant]
     Active Substance: HYDROCHLOROTHIAZIDE\LISINOPRIL
  9. MIRALAX [Concomitant]
     Active Substance: POLYETHYLENE GLYCOL 3350

REACTIONS (2)
  - Urinary retention [None]
  - Constipation [None]

NARRATIVE: CASE EVENT DATE: 20151023
